FAERS Safety Report 4890645-7 (Version None)
Quarter: 2006Q1

REPORT INFORMATION
  Report Type: 
  Country: None (occurrence: None)
  Receive Date: 20060125
  Receipt Date: 20050518
  Transmission Date: 20060701
  Serious: No
  Sender: FDA-Public Use
  Company Number: US-BRISTOL-MYERS SQUIBB COMPANY-12973947

PATIENT
  Age: 49 Year
  Sex: Female
  Weight: 61 kg

DRUGS (4)
  1. CARDIOLITE [Suspect]
     Dosage: DOSE VALUE:  FIRST INJECTION: 21.3 MCI.  SECOND INJECTION:  NOT REPORTED
     Dates: start: 20050518, end: 20050519
  2. VITAMINS [Concomitant]
  3. FISH OIL [Concomitant]
  4. ASPIRIN [Concomitant]

REACTIONS (1)
  - VISION BLURRED [None]
